FAERS Safety Report 14211664 (Version 2)
Quarter: 2018Q1

REPORT INFORMATION
  Report Type: Spontaneous
  Country: JP (occurrence: JP)
  Receive Date: 20171122
  Receipt Date: 20180220
  Transmission Date: 20180508
  Serious: Yes (Death, Life-Threatening, Hospitalization)
  Sender: FDA-Public Use
  Company Number: JP-ELI_LILLY_AND_COMPANY-JP201710009800

PATIENT
  Age: 66 Year
  Sex: Male
  Weight: 42 kg

DRUGS (8)
  1. TRAMAL [Concomitant]
     Active Substance: TRAMADOL
     Dosage: 150 MG, DAILY
     Route: 048
     Dates: start: 20170531
  2. LEVOFOLINATE CALCIUM [Concomitant]
     Active Substance: LEVOLEUCOVORIN CALCIUM
     Indication: RECTAL CANCER
     Dosage: UNK
     Dates: start: 20170407
  3. IRINOTECAN [Concomitant]
     Active Substance: IRINOTECAN
     Indication: RECTAL CANCER
     Dosage: UNK
     Dates: start: 20170407
  4. FLUOROURACIL. [Concomitant]
     Active Substance: FLUOROURACIL
     Indication: RECTAL CANCER
     Dosage: UNK
     Dates: start: 20170407
  5. AMLODIPINE                         /00972402/ [Concomitant]
     Active Substance: AMLODIPINE BESYLATE
     Dosage: 5 MG, DAILY
     Route: 048
     Dates: start: 20170522
  6. CALONAL [Concomitant]
     Active Substance: ACETAMINOPHEN
     Dosage: 1800 MG, DAILY
     Route: 048
     Dates: start: 20170408
  7. CYRAMZA [Suspect]
     Active Substance: RAMUCIRUMAB
     Indication: RECTAL CANCER
     Dosage: UNK
     Route: 041
     Dates: start: 20170407
  8. AZILVA [Concomitant]
     Active Substance: AZILSARTAN KAMEDOXOMIL
     Dosage: 40 MG, DAILY
     Route: 048
     Dates: start: 20170522

REACTIONS (7)
  - Malignant neoplasm progression [Fatal]
  - Malignant pleural effusion [Not Recovered/Not Resolved]
  - Malignant ascites [Not Recovered/Not Resolved]
  - Lymphangiosis carcinomatosa [Fatal]
  - Pneumonia [Fatal]
  - Gastrointestinal perforation [Recovering/Resolving]
  - Hydronephrosis [Not Recovered/Not Resolved]

NARRATIVE: CASE EVENT DATE: 20170516
